FAERS Safety Report 4768197-1 (Version None)
Quarter: 2005Q3

REPORT INFORMATION
  Report Type: 
  Country: None (occurrence: None)
  Receive Date: 20050914
  Receipt Date: 20050429
  Transmission Date: 20060218
  Serious: Yes (Congenital Anomaly, Other)
  Sender: FDA-Public Use
  Company Number: GB-ABBOTT-05P-167-0298951-00

PATIENT
  Sex: Male

DRUGS (4)
  1. NORVIR [Suspect]
     Indication: DRUG EXPOSURE DURING PREGNANCY
  2. PROTHIADEN [Suspect]
     Indication: DRUG EXPOSURE DURING PREGNANCY
  3. ATAZANIR [Concomitant]
     Indication: DRUG EXPOSURE DURING PREGNANCY
  4. TRUVADA [Concomitant]
     Indication: DRUG EXPOSURE DURING PREGNANCY

REACTIONS (2)
  - FOETAL CARDIAC DISORDER [None]
  - PERICARDIAL EFFUSION [None]
